FAERS Safety Report 20832203 (Version 1)
Quarter: 2022Q2

REPORT INFORMATION
  Report Type: 
  Country: None (occurrence: None)
  Receive Date: 20220516
  Receipt Date: 20220516
  Transmission Date: 20220721
  Serious: No
  Sender: FDA-Public Use
  Company Number: ROCHE-3094125

PATIENT

DRUGS (2)
  1. OCRELIZUMAB [Suspect]
     Active Substance: OCRELIZUMAB
     Dates: start: 20180411, end: 20180425
  2. OCRELIZUMAB [Suspect]
     Active Substance: OCRELIZUMAB
     Dates: start: 20181017

REACTIONS (1)
  - COVID-19 [None]

NARRATIVE: CASE EVENT DATE: 20220321
